FAERS Safety Report 7425686-9 (Version None)
Quarter: 2011Q2

REPORT INFORMATION
  Report Type: 
  Country: None (occurrence: None)
  Receive Date: 20110420
  Receipt Date: 20110405
  Transmission Date: 20111010
  Serious: Yes (Death, Other)
  Sender: FDA-Public Use
  Company Number: PL-JNJFOC-20110406348

PATIENT
  Age: 46 Year
  Sex: Female

DRUGS (3)
  1. 2-CHLORODEOXYADENOSINE [Suspect]
     Dosage: 0.12MG/KG (8 MG/ DAY)
     Route: 065
  2. 2-CHLORODEOXYADENOSINE [Suspect]
     Dosage: 0.12MG/KG (8 MG/ DAY)
     Route: 065
  3. 2-CHLORODEOXYADENOSINE [Suspect]
     Indication: MYCOSIS FUNGOIDES
     Dosage: 0.12MG/KG (8 MG/ DAY)
     Route: 065

REACTIONS (2)
  - METASTASES TO CENTRAL NERVOUS SYSTEM [None]
  - DRUG EFFECT DECREASED [None]
